FAERS Safety Report 20291011 (Version 1)
Quarter: 2022Q1

REPORT INFORMATION
  Report Type: Spontaneous
  Country: GB (occurrence: GB)
  Receive Date: 20220104
  Receipt Date: 20220104
  Transmission Date: 20220423
  Serious: Yes (Other)
  Sender: FDA-Public Use
  Company Number: GB-PFIZER INC-202101624844

PATIENT
  Sex: Female

DRUGS (4)
  1. PHENYTOIN SODIUM [Interacting]
     Active Substance: PHENYTOIN SODIUM
     Indication: Epilepsy
     Dosage: UNK
     Dates: start: 2015
  2. FOLIC ACID [Interacting]
     Active Substance: FOLIC ACID
     Dosage: 5 MG
  3. LYRICA [Concomitant]
     Active Substance: PREGABALIN
     Indication: Seizure prophylaxis
     Dosage: 75 MG
  4. EPANUTIN INFATABS [Concomitant]
     Dosage: UNK

REACTIONS (4)
  - Drug interaction [Unknown]
  - Seizure [Unknown]
  - Musculoskeletal discomfort [Unknown]
  - Back pain [Unknown]
